FAERS Safety Report 8990901 (Version 1)
Quarter: 2012Q4

REPORT INFORMATION
  Report Type: Spontaneous
  Country: CN (occurrence: None)
  Receive Date: 20121221
  Receipt Date: 20121221
  Transmission Date: 20130627
  Serious: Yes (Other)
  Sender: FDA-Public Use
  Company Number: VAL_01203_2012

PATIENT
  Age: 72 Year
  Sex: Female

DRUGS (1)
  1. LOTENSIN /00909102/ (LOTENSIN-BENAZEPRIL HYDROCHLORIDE) (NOT SPECIFIED) [Suspect]
     Indication: HYPERTENSION
     Dosage: (1 DF QD Oral)
     Route: 048
     Dates: start: 20100414

REACTIONS (4)
  - Dizziness [None]
  - Blood pressure inadequately controlled [None]
  - Blood pressure decreased [None]
  - Abasia [None]
